FAERS Safety Report 23794003 (Version 1)
Quarter: 2024Q2

REPORT INFORMATION
  Report Type: Spontaneous
  Country: US (occurrence: None)
  Receive Date: 20240426
  Receipt Date: 20240426
  Transmission Date: 20240716
  Serious: No
  Sender: FDA-Public Use
  Company Number: None

PATIENT
  Age: 38 Year
  Sex: Male

DRUGS (2)
  1. AMOXICILLIN TRIHYDRATE [Suspect]
     Active Substance: AMOXICILLIN
     Indication: Nephrolithiasis
     Dosage: FREQUENCY : TWICE A DAY;?
     Route: 048
     Dates: start: 20230327, end: 20230405
  2. AMOXICILLIN TRIHYDRATE [Suspect]
     Active Substance: AMOXICILLIN
     Indication: Diverticulitis

REACTIONS (9)
  - Abdominal pain [None]
  - Diarrhoea [None]
  - Liver function test increased [None]
  - Vomiting [None]
  - Nausea [None]
  - White blood cell count increased [None]
  - Aspartate aminotransferase increased [None]
  - Alanine aminotransferase increased [None]
  - Drug-induced liver injury [None]

NARRATIVE: CASE EVENT DATE: 20230409
